FAERS Safety Report 7493439-1 (Version None)
Quarter: 2011Q2

REPORT INFORMATION
  Report Type: 
  Country: None (occurrence: None)
  Receive Date: 20110519
  Receipt Date: 20110519
  Transmission Date: 20111010
  Serious: Yes (Hospitalization)
  Sender: FDA-Public Use
  Company Number: None

PATIENT
  Sex: Female

DRUGS (1)
  1. TYKERB [Suspect]
     Indication: BREAST CANCER
     Dosage: 1250MG ONCE DAILY BY MOUTH
     Route: 048
     Dates: start: 20110321, end: 20110401

REACTIONS (2)
  - VOMITING [None]
  - NAUSEA [None]
